FAERS Safety Report 6666174-7 (Version None)
Quarter: 2010Q2

REPORT INFORMATION
  Report Type: 
  Country: None (occurrence: None)
  Receive Date: 20100402
  Receipt Date: 20100322
  Transmission Date: 20101027
  Serious: No
  Sender: FDA-Public Use
  Company Number: US-ROXANE LABORATORIES, INC.-2010-RO-00326RO

PATIENT
  Sex: Female

DRUGS (6)
  1. PREDNISONE TAB [Suspect]
     Dates: start: 20090901
  2. LANTUS [Suspect]
     Indication: TYPE 2 DIABETES MELLITUS
     Route: 058
     Dates: start: 20090901
  3. APIDRA [Suspect]
     Indication: TYPE 2 DIABETES MELLITUS
     Route: 058
     Dates: start: 20090901
  4. SOLOSTAR [Suspect]
     Indication: TYPE 2 DIABETES MELLITUS
     Dates: start: 20090901
  5. GLUCOTROL XL [Concomitant]
  6. JANUVIA [Concomitant]

REACTIONS (1)
  - BLOOD GLUCOSE INCREASED [None]
